FAERS Safety Report 9771102 (Version 1)
Quarter: 2013Q4

REPORT INFORMATION
  Report Type: Spontaneous
  Country: GB (occurrence: GB)
  Receive Date: 20131218
  Receipt Date: 20131218
  Transmission Date: 20140711
  Serious: Yes (Disabling)
  Sender: FDA-Public Use
  Company Number: GB-TEVA-450016ISR

PATIENT
  Age: 92 Year
  Sex: Male
  Weight: 70 kg

DRUGS (6)
  1. WARFARIN [Suspect]
     Indication: ATRIAL FIBRILLATION
     Dosage: 4/5MG
     Route: 048
     Dates: start: 201305, end: 201310
  2. OMEPRAZOLE [Concomitant]
     Dosage: 20 MILLIGRAM DAILY; LONG TERM
     Route: 048
  3. SIMVASTATIN [Concomitant]
     Dosage: 40 MILLIGRAM DAILY; AT NIGHT.  LONG TERM USE.
     Route: 048
  4. RAMIPRIL [Concomitant]
     Dosage: 5 MILLIGRAM DAILY; LONG TERM USE.
     Route: 048
  5. FUROSEMIDE [Concomitant]
     Dosage: 80 MILLIGRAM DAILY; LONG TERM USE.
     Route: 048
  6. DIGOXIN [Concomitant]
     Dosage: LONG TERM USE.
     Route: 048

REACTIONS (2)
  - Pruritus [Recovered/Resolved]
  - Insomnia [Recovered/Resolved]
